FAERS Safety Report 5749818-3 (Version None)
Quarter: 2008Q2

REPORT INFORMATION
  Report Type: 
  Country: None (occurrence: None)
  Receive Date: 20080522
  Receipt Date: 20080522
  Transmission Date: 20081010
  Serious: No
  Sender: FDA-Public Use
  Company Number: None

PATIENT
  Sex: Female

DRUGS (2)
  1. LOVENOX [Suspect]
     Indication: PULMONARY EMBOLISM
     Dosage: 100 MG Q12 SQ
     Route: 058
     Dates: start: 20080114, end: 20080115
  2. LOVENOX [Suspect]
     Indication: PULMONARY EMBOLISM
     Dosage: 150 MG Q24 SQ
     Route: 058
     Dates: start: 20080129, end: 20080131

REACTIONS (3)
  - FEELING JITTERY [None]
  - NAUSEA [None]
  - UNEVALUABLE EVENT [None]
